FAERS Safety Report 5649179-4 (Version None)
Quarter: 2008Q1

REPORT INFORMATION
  Report Type: 
  Country: None (occurrence: None)
  Receive Date: 20080229
  Receipt Date: 20080219
  Transmission Date: 20080703
  Serious: Yes (Hospitalization)
  Sender: FDA-Public Use
  Company Number: 2008VX000370

PATIENT
  Sex: Male

DRUGS (23)
  1. ZELAPAR [Suspect]
     Indication: PARKINSON'S DISEASE
     Dosage: 1.25 MG;QD; PO;  2.5  MG; QD
     Route: 048
     Dates: start: 20071215, end: 20071219
  2. ZELAPAR [Suspect]
     Indication: PARKINSON'S DISEASE
     Dosage: 1.25 MG;QD; PO;  2.5  MG; QD
     Route: 048
     Dates: start: 20071228, end: 20080125
  3. ZELAPAR [Suspect]
     Indication: PARKINSON'S DISEASE
     Dosage: 1.25 MG;QD; PO;  2.5  MG; QD
     Route: 048
     Dates: start: 20080126, end: 20080201
  4. COGENTIN [Concomitant]
  5. PRAMIPEXOLE DIHYDROCHLORIDE [Concomitant]
  6. SINEMET [Concomitant]
  7. PROVIGIL [Concomitant]
  8. TESTOSTERONE [Concomitant]
  9. PENTOXIFYLLINE [Concomitant]
  10. VITAMIN B-12 [Concomitant]
  11. LISINOPRIL [Concomitant]
  12. LACTOBACILLUS ACIDOPHILUS [Concomitant]
  13. VITAMIN B1 [Concomitant]
  14. CENTRUM [Concomitant]
  15. . [Concomitant]
  16. FOLIC ACID [Concomitant]
  17. TUMS [Concomitant]
  18. ASPIRIN [Concomitant]
  19. ADVIL [Concomitant]
  20. TYLENOL [Concomitant]
  21. COENZYME Q10 [Concomitant]
  22. VITAMIN D [Concomitant]
  23. PANTOPRAZOLE SODIUM [Concomitant]

REACTIONS (4)
  - FALL [None]
  - GASTRIC ULCER HAEMORRHAGE [None]
  - LABYRINTHITIS [None]
  - SPINAL COMPRESSION FRACTURE [None]
